FAERS Safety Report 5591463-7 (Version None)
Quarter: 2008Q1

REPORT INFORMATION
  Report Type: 
  Country: None (occurrence: None)
  Receive Date: 20080115
  Receipt Date: 20080110
  Transmission Date: 20080703
  Serious: Yes (Life-Threatening)
  Sender: FDA-Public Use
  Company Number: FR-JNJFOC-20080102429

PATIENT
  Sex: Male

DRUGS (4)
  1. REOPRO [Suspect]
     Indication: DRUG USE FOR UNKNOWN INDICATION
     Route: 042
  2. HEPARIN [Concomitant]
  3. PLAVIX [Concomitant]
  4. KARDEGIC [Concomitant]

REACTIONS (2)
  - CARDIOGENIC SHOCK [None]
  - THROMBOCYTOPENIA [None]
